FAERS Safety Report 25432438 (Version 1)
Quarter: 2025Q2

REPORT INFORMATION
  Report Type: Other
  Country: FR (occurrence: FR)
  Receive Date: 20250613
  Receipt Date: 20250613
  Transmission Date: 20250716
  Serious: Yes (Life-Threatening)
  Sender: ZYDUS PHARM
  Company Number: None

PATIENT

DRUGS (3)
  1. DULOXETINE [Suspect]
     Active Substance: DULOXETINE
     Indication: Poisoning deliberate
     Route: 048
     Dates: start: 20250509, end: 20250509
  2. MORPHINE SULFATE [Suspect]
     Active Substance: MORPHINE SULFATE
     Indication: Poisoning deliberate
     Route: 048
     Dates: start: 20250509, end: 20250509
  3. SKENAN [Suspect]
     Active Substance: MORPHINE SULFATE
     Indication: Poisoning deliberate
     Route: 048
     Dates: start: 20250509, end: 20250509

REACTIONS (3)
  - Miosis [Recovered/Resolved]
  - Bradypnoea [Recovered/Resolved]
  - Coma [Recovered/Resolved]

NARRATIVE: CASE EVENT DATE: 20250509
